FAERS Safety Report 17511356 (Version 1)
Quarter: 2020Q1

REPORT INFORMATION
  Report Type: Spontaneous
  Country: DE (occurrence: DE)
  Receive Date: 20200306
  Receipt Date: 20200306
  Transmission Date: 20200409
  Serious: Yes (Life-Threatening, Hospitalization, Other)
  Sender: FDA-Public Use
  Company Number: DE-MYLANLABS-2020M1025235

PATIENT
  Age: 89 Year
  Sex: Male

DRUGS (7)
  1. BENSERAZIDE/LEVODOPA [Suspect]
     Active Substance: BENSERAZIDE\LEVODOPA
     Indication: PARKINSON^S DISEASE
     Dosage: 100/25 MG RETARD 0-0-0-1
     Route: 048
  2. ACETYLSALICYLIC ACID [Suspect]
     Active Substance: ASPIRIN
     Indication: ACUTE MYOCARDIAL INFARCTION
     Dosage: 1-0-0
     Route: 048
  3. FELODIPINE W/RAMIPRIL [Suspect]
     Active Substance: FELODIPINE\RAMIPRIL
     Indication: HYPERTENSION
     Dosage: 2.5/2.5 MG 0.5-0-0.5
     Route: 048
  4. BENSERAZIDE/LEVODOPA [Suspect]
     Active Substance: BENSERAZIDE\LEVODOPA
     Dosage: 100/25 MG, INTAKE TIMES: 7 AM-10 AM-1 PM-4 PM-7 PM
     Route: 048
  5. AMANTADINE. [Suspect]
     Active Substance: AMANTADINE HYDROCHLORIDE
     Indication: PARKINSON^S DISEASE
     Dosage: 1-1-1
     Route: 048
  6. ENTACAPONE. [Suspect]
     Active Substance: ENTACAPONE
     Indication: PARKINSON^S DISEASE
     Dosage: INTAKE TIMES: 7 AM-10 AM-1 PM-4 PM-7 PM
     Route: 048
  7. CLOPIDOGREL [Suspect]
     Active Substance: CLOPIDOGREL BISULFATE
     Indication: ACUTE MYOCARDIAL INFARCTION
     Dosage: 1-0-0
     Route: 048

REACTIONS (5)
  - Electrocardiogram abnormal [Unknown]
  - Ventricular extrasystoles [Unknown]
  - Tachycardia [Unknown]
  - Overdose [Unknown]
  - Torsade de pointes [Unknown]
